FAERS Safety Report 9718469 (Version 1)
Quarter: 2013Q4

REPORT INFORMATION
  Report Type: Spontaneous
  Country: US (occurrence: US)
  Receive Date: 20131125
  Receipt Date: 20131125
  Transmission Date: 20140711
  Serious: No
  Sender: FDA-Public Use
  Company Number: US-VIVUS-2013V1000559

PATIENT
  Age: 60 Year
  Sex: Male
  Weight: 122.64 kg

DRUGS (5)
  1. QSYMIA 3.75MG/23MG [Suspect]
     Indication: WEIGHT DECREASED
     Route: 048
     Dates: start: 201307, end: 201307
  2. LISINOPRIL/HCTZ [Concomitant]
     Indication: BLOOD PRESSURE
     Dosage: 10/12.5 MG
     Route: 048
  3. ATENOLOL [Concomitant]
     Indication: BLOOD PRESSURE
     Route: 048
  4. PRAVASTATIN [Concomitant]
     Indication: BLOOD CHOLESTEROL
     Dosage: STARTED A LONG TIME AGO
     Route: 048
  5. SERTRALINE [Concomitant]
     Indication: ANXIETY
     Dosage: STARTED A WHILE AGO
     Route: 048

REACTIONS (2)
  - Hypotension [Recovered/Resolved]
  - Diarrhoea [Recovered/Resolved]
